FAERS Safety Report 16185293 (Version 1)
Quarter: 2019Q2

REPORT INFORMATION
  Report Type: Spontaneous
  Country: US (occurrence: US)
  Receive Date: 20190411
  Receipt Date: 20190411
  Transmission Date: 20190711
  Serious: Yes (Hospitalization, Disabling)
  Sender: FDA-Public Use
  Company Number: US-JNJFOC-20190410287

PATIENT
  Age: 65 Year
  Sex: Male

DRUGS (2)
  1. INVOKAMET [Suspect]
     Active Substance: CANAGLIFLOZIN\METFORMIN HYDROCHLORIDE
     Indication: DIABETES MELLITUS
     Dosage: 150/500 MG
     Route: 048
     Dates: end: 201611
  2. NAPROXEN. [Suspect]
     Active Substance: NAPROXEN
     Indication: PRODUCT USED FOR UNKNOWN INDICATION
     Route: 065
     Dates: start: 201610, end: 201611

REACTIONS (6)
  - Osteomyelitis acute [Recovering/Resolving]
  - Gangrene [Recovering/Resolving]
  - Acute kidney injury [Recovering/Resolving]
  - Peripheral arterial occlusive disease [Recovering/Resolving]
  - Toe amputation [Unknown]
  - Leg amputation [Unknown]

NARRATIVE: CASE EVENT DATE: 201610
